FAERS Safety Report 15249032 (Version 1)
Quarter: 2018Q3

REPORT INFORMATION
  Report Type: Spontaneous
  Country: US (occurrence: US)
  Receive Date: 20180807
  Receipt Date: 20180807
  Transmission Date: 20181010
  Serious: Yes (Other)
  Sender: FDA-Public Use
  Company Number: US-ROCHE-2164757

PATIENT
  Age: 43 Year
  Sex: Female

DRUGS (1)
  1. ACTEMRA [Suspect]
     Active Substance: TOCILIZUMAB
     Indication: RHEUMATOID ARTHRITIS
     Dosage: FORM STRENGTH: 162/0.9ML
     Route: 058
     Dates: start: 20170411

REACTIONS (2)
  - Drug dose omission [Unknown]
  - Thrombosis [Unknown]

NARRATIVE: CASE EVENT DATE: 20180701
